FAERS Safety Report 14910082 (Version 5)
Quarter: 2018Q3

REPORT INFORMATION
  Report Type: Report from Study
  Country: IT (occurrence: IT)
  Receive Date: 20180517
  Receipt Date: 20180802
  Transmission Date: 20181010
  Serious: Yes (Other)
  Sender: FDA-Public Use
  Company Number: IT-INCYTE CORPORATION-2018IN004674

PATIENT

DRUGS (3)
  1. JAKAVI [Suspect]
     Active Substance: RUXOLITINIB
     Dosage: 40 OT, QD
     Route: 065
     Dates: start: 20180321, end: 20180418
  2. JAKAVI [Suspect]
     Active Substance: RUXOLITINIB
     Indication: MYELOFIBROSIS
     Dosage: 30 OT, QD
     Route: 065
     Dates: start: 20180223, end: 20180320
  3. JAKAVI [Suspect]
     Active Substance: RUXOLITINIB
     Dosage: 10 OT, QD
     Route: 065
     Dates: start: 20180419

REACTIONS (5)
  - Aspartate aminotransferase increased [Unknown]
  - Haematotoxicity [Not Recovered/Not Resolved]
  - Hepatotoxicity [Recovered/Resolved]
  - Thrombocytopenia [Unknown]
  - Anaemia [Unknown]

NARRATIVE: CASE EVENT DATE: 20180321
